FAERS Safety Report 9637711 (Version 1)
Quarter: 2013Q4

REPORT INFORMATION
  Report Type: Spontaneous
  Country: US (occurrence: US)
  Receive Date: 20131022
  Receipt Date: 20131022
  Transmission Date: 20140711
  Serious: No
  Sender: FDA-Public Use
  Company Number: US-BAYER-2013-127120

PATIENT
  Age: 58 Year
  Sex: Female

DRUGS (2)
  1. AVELOX [Suspect]
     Indication: NAIL INFECTION
     Dosage: 400 MG, QD
     Route: 048
     Dates: start: 20131014, end: 20131015
  2. AVELOX [Suspect]
     Indication: BACTERIAL INFECTION

REACTIONS (6)
  - Heart rate irregular [Recovering/Resolving]
  - Palpitations [None]
  - Hypoaesthesia [Recovering/Resolving]
  - Paraesthesia [Recovering/Resolving]
  - Pain in extremity [Recovering/Resolving]
  - Arthralgia [Recovering/Resolving]
